FAERS Safety Report 5635014-7 (Version None)
Quarter: 2008Q1

REPORT INFORMATION
  Report Type: 
  Country: None (occurrence: None)
  Receive Date: 20080222
  Receipt Date: 20080220
  Transmission Date: 20080703
  Serious: Yes (Life-Threatening)
  Sender: FDA-Public Use
  Company Number: GB-WYE-G01104208

PATIENT
  Age: 33 Year
  Sex: Female
  Weight: 92 kg

DRUGS (2)
  1. TAZOCIN [Suspect]
     Indication: PYREXIA
     Dosage: 4.5 G FREQUENCY UNKNOWN
     Route: 042
     Dates: start: 20080118, end: 20080119
  2. TAZOCIN [Suspect]
     Indication: CHILLS

REACTIONS (1)
  - EOSINOPHILIC MYOCARDITIS [None]
